FAERS Safety Report 7999066-1 (Version None)
Quarter: 2011Q4

REPORT INFORMATION
  Report Type: 
  Country: None (occurrence: None)
  Receive Date: 20111221
  Receipt Date: 20111214
  Transmission Date: 20120403
  Serious: Yes (Life-Threatening, Hospitalization, Other)
  Sender: FDA-Public Use
  Company Number: JP-ROCHE-1008462

PATIENT
  Sex: Male
  Weight: 58 kg

DRUGS (14)
  1. AVASTIN [Suspect]
     Indication: COLON CANCER METASTATIC
     Route: 041
     Dates: start: 20110906, end: 20110906
  2. XELODA [Suspect]
     Dosage: DOSAGE IS UNCERTAIN.
     Route: 048
     Dates: start: 20110906, end: 20110919
  3. XELODA [Suspect]
     Dosage: DOSAGE IS UNCERTAIN.
     Route: 048
     Dates: start: 20110926
  4. OXALIPLATIN [Suspect]
     Dosage: DOSAGE IS UNCERTAIN.
     Route: 041
     Dates: start: 20110926
  5. AVASTIN [Suspect]
     Route: 041
     Dates: start: 20110926, end: 20110926
  6. MAGMITT [Concomitant]
     Indication: CONSTIPATION
     Route: 048
     Dates: start: 20110719
  7. HUMALOG [Concomitant]
     Indication: DIABETES MELLITUS
     Dosage: DOSAGE IS UNCERTAIN.
     Route: 058
     Dates: start: 20110815
  8. XELODA [Suspect]
     Indication: COLON CANCER METASTATIC
     Dosage: DOSAGE IS UNCERTAIN.
     Route: 048
     Dates: start: 20110815, end: 20110828
  9. OXALIPLATIN [Suspect]
     Dosage: DOSAGE IS UNCERTAIN.
     Route: 041
     Dates: start: 20110906, end: 20110906
  10. PYDOXAL [Concomitant]
     Route: 048
     Dates: start: 20110815
  11. AMLODIPINE [Concomitant]
     Indication: HYPERTENSION
     Route: 048
  12. CARVEDILOL [Concomitant]
     Indication: HYPERTENSION
     Route: 048
  13. DAI-KENCHU-TO [Concomitant]
     Indication: CONSTIPATION
     Route: 048
     Dates: start: 20110719
  14. OXALIPLATIN [Suspect]
     Indication: COLON CANCER METASTATIC
     Dosage: DOSAGE IS UNCERTAIN.
     Route: 041
     Dates: start: 20110815, end: 20110815

REACTIONS (6)
  - HYPOALBUMINAEMIA [None]
  - DEHYDRATION [None]
  - THROMBOCYTOPENIA [None]
  - DECREASED APPETITE [None]
  - DIARRHOEA [None]
  - MALAISE [None]
